FAERS Safety Report 10057892 (Version 2)
Quarter: 2014Q2

REPORT INFORMATION
  Report Type: Spontaneous
  Country: US (occurrence: US)
  Receive Date: 20140404
  Receipt Date: 20140429
  Transmission Date: 20141212
  Serious: No
  Sender: FDA-Public Use
  Company Number: US-US-EMD SERONO, INC.-7278896

PATIENT
  Sex: Male

DRUGS (1)
  1. REBIF [Suspect]
     Indication: MULTIPLE SCLEROSIS
     Dates: start: 2007, end: 20140224

REACTIONS (3)
  - Multiple sclerosis relapse [Recovering/Resolving]
  - Hepatic enzyme increased [Recovered/Resolved]
  - Drug ineffective [Unknown]
